FAERS Safety Report 19742277 (Version 1)
Quarter: 2021Q3

REPORT INFORMATION
  Report Type: Spontaneous
  Country: US (occurrence: US)
  Receive Date: 20210825
  Receipt Date: 20210825
  Transmission Date: 20211014
  Serious: No
  Sender: FDA-Public Use
  Company Number: US-ACCORD-227743

PATIENT
  Sex: Male

DRUGS (1)
  1. BUPROPION ACCORD [Suspect]
     Active Substance: BUPROPION HYDROCHLORIDE
     Indication: DEPRESSION
     Dosage: DAILY

REACTIONS (3)
  - Abdominal discomfort [Recovered/Resolved]
  - Product odour abnormal [Unknown]
  - Drug ineffective [Unknown]
